FAERS Safety Report 18134387 (Version 3)
Quarter: 2020Q3

REPORT INFORMATION
  Report Type: Spontaneous
  Country: US (occurrence: US)
  Receive Date: 20200811
  Receipt Date: 20200820
  Transmission Date: 20201103
  Serious: Yes (Other)
  Sender: FDA-Public Use
  Company Number: US-PFIZER INC-2020303896

PATIENT
  Age: 41 Year
  Sex: Female

DRUGS (3)
  1. FINGOLIMOD. [Suspect]
     Active Substance: FINGOLIMOD
     Indication: IMMUNOMODULATORY THERAPY
     Dosage: 0.5 MG, DAILY
     Route: 048
  2. ABATACEPT [Suspect]
     Active Substance: ABATACEPT
     Indication: IMMUNOMODULATORY THERAPY
     Dosage: 750 MG, MONTHLY
     Route: 042
  3. METHOTREXATE SODIUM. [Suspect]
     Active Substance: METHOTREXATE SODIUM
     Indication: IMMUNOMODULATORY THERAPY
     Dosage: 12.5 MG, WEEKLY
     Route: 048

REACTIONS (2)
  - CD4 lymphocytes decreased [Recovered/Resolved]
  - Molluscum contagiosum [Recovered/Resolved]
